FAERS Safety Report 4900737-1 (Version None)
Quarter: 2006Q1

REPORT INFORMATION
  Report Type: 
  Country: None (occurrence: None)
  Receive Date: 20060201
  Receipt Date: 20060119
  Transmission Date: 20060701
  Serious: Yes (Hospitalization)
  Sender: FDA-Public Use
  Company Number: 06-0008PO

PATIENT
  Sex: Female

DRUGS (4)
  1. MEFENAMIC ACID [Suspect]
     Dosage: ORAL
     Route: 048
     Dates: end: 20051106
  2. ALEVE [Suspect]
     Dosage: 220MG, ORAL
     Route: 048
     Dates: end: 20051106
  3. ASPIRIN [Suspect]
     Dates: end: 20051106
  4. TRANXILIUM [Suspect]
     Dates: end: 20051106

REACTIONS (7)
  - DRUG ABUSER [None]
  - ENTEROCOLITIS HAEMORRHAGIC [None]
  - GASTRIC ULCER [None]
  - GASTRITIS HAEMORRHAGIC [None]
  - LARGE INTESTINAL ULCER [None]
  - SOMNOLENCE [None]
  - TACHYCARDIA [None]
